FAERS Safety Report 4660760-1 (Version None)
Quarter: 2005Q2

REPORT INFORMATION
  Report Type: 
  Country: None (occurrence: None)
  Receive Date: 20050511
  Receipt Date: 20050504
  Transmission Date: 20051028
  Serious: No
  Sender: FDA-Public Use
  Company Number: US-2005-002656

PATIENT
  Age: 34 Year
  Sex: Female
  Weight: 53.5 kg

DRUGS (2)
  1. YASMIN [Suspect]
     Indication: MIGRAINE
     Dosage: 1 TAB(S), 1X/DAY, ORAL
     Route: 048
     Dates: start: 20030101, end: 20050221
  2. NEXIUM   /USA/ (ESOMEPRAZOLE MAGNESIUM) [Concomitant]

REACTIONS (9)
  - ARTHRALGIA [None]
  - BACK PAIN [None]
  - BLOOD OESTROGEN INCREASED [None]
  - DESMOID TUMOUR [None]
  - HAEMANGIOMA [None]
  - INFERTILITY [None]
  - INTERVERTEBRAL DISC PROTRUSION [None]
  - MASS [None]
  - PELVIC NEOPLASM [None]
